FAERS Safety Report 5514222-X (Version None)
Quarter: 2007Q4

REPORT INFORMATION
  Report Type: 
  Country: None (occurrence: None)
  Receive Date: 20071113
  Receipt Date: 20071108
  Transmission Date: 20080405
  Serious: Yes (Other)
  Sender: FDA-Public Use
  Company Number: CA-ASTRAZENECA-2007UW26030

PATIENT
  Age: 77 Year
  Sex: Male

DRUGS (18)
  1. XYLOCAINE [Suspect]
     Route: 047
  2. ALPHAGAN [Suspect]
     Route: 047
  3. BACTIGRAS [Suspect]
     Route: 047
  4. CYCLOPENTOLATE HYDROCHLORIDE [Suspect]
     Route: 047
  5. D.O.R.C. VISION BLUE [Suspect]
     Route: 047
  6. FLURBIPROFEN [Suspect]
     Route: 047
  7. KETOROLAC [Suspect]
  8. NEOSPORIN [Suspect]
  9. PHENYLEPHRINE HYDROCHLORIDE [Suspect]
     Route: 047
  10. PROVIODINE [Suspect]
     Route: 047
  11. TETRACAINE [Suspect]
     Route: 047
  12. TROPICAMIDE [Suspect]
     Route: 047
  13. ZYMAR [Suspect]
     Route: 047
  14. ALLOPURINOL [Concomitant]
  15. ALTACE [Concomitant]
  16. DIABETA [Concomitant]
  17. GLUCOREG [Concomitant]
     Route: 048
  18. PERCOCET [Concomitant]

REACTIONS (1)
  - INFLAMMATION [None]
